FAERS Safety Report 13877291 (Version 1)
Quarter: 2017Q3

REPORT INFORMATION
  Report Type: Spontaneous
  Country: ES (occurrence: ES)
  Receive Date: 20170817
  Receipt Date: 20170817
  Transmission Date: 20171127
  Serious: Yes (Hospitalization)
  Sender: FDA-Public Use
  Company Number: ES-BAYER-2017-150930

PATIENT
  Age: 78 Year
  Sex: Female

DRUGS (3)
  1. VIDAZA [Interacting]
     Active Substance: AZACITIDINE
     Dosage: UNK
     Route: 040
     Dates: start: 20170530, end: 201707
  2. HYDREA [Interacting]
     Active Substance: HYDROXYUREA
     Dosage: UNK
     Route: 048
     Dates: start: 20170116, end: 20170725
  3. ADIRO 100 MG [Suspect]
     Active Substance: ASPIRIN
     Dosage: UNK
     Route: 048
     Dates: start: 2014, end: 201707

REACTIONS (2)
  - Thrombocytopenia [Recovering/Resolving]
  - Haemorrhage [Recovered/Resolved]

NARRATIVE: CASE EVENT DATE: 201706
